FAERS Safety Report 19362084 (Version 1)
Quarter: 2021Q2

REPORT INFORMATION
  Report Type: Spontaneous
  Country: US (occurrence: US)
  Receive Date: 20210601
  Receipt Date: 20210601
  Transmission Date: 20210717
  Serious: No
  Sender: FDA-Public Use
  Company Number: US-BAYER-2021-149858

PATIENT
  Age: 38 Year
  Sex: Female

DRUGS (1)
  1. MIRENA [Suspect]
     Active Substance: LEVONORGESTREL
     Dosage: 20 ?G PER DAY CONITNUOUSLY
     Route: 015
     Dates: end: 20210526

REACTIONS (1)
  - Uterine cervix stenosis [Not Recovered/Not Resolved]

NARRATIVE: CASE EVENT DATE: 20210526
